FAERS Safety Report 6427666-9 (Version None)
Quarter: 2009Q4

REPORT INFORMATION
  Report Type: 
  Country: None (occurrence: None)
  Receive Date: 20091105
  Receipt Date: 20091027
  Transmission Date: 20100525
  Serious: Yes (Other)
  Sender: FDA-Public Use
  Company Number: CA-RANBAXY-2009RR-28722

PATIENT
  Age: 60 Year
  Sex: Male

DRUGS (8)
  1. FENOFIBRATE [Suspect]
     Dosage: 267 MG, UNK
  2. FENOFIBRATE [Suspect]
     Dosage: 145 MG, QD
     Dates: start: 20060901, end: 20061201
  3. ATORVASTATIN [Concomitant]
     Dosage: 10 MG, UNK
  4. LEVOTHYROXINE SODIUM [Concomitant]
  5. METOPROLOL [Concomitant]
  6. HYDROCHLOROTHIAZIDE [Concomitant]
  7. AMLODIPINE [Concomitant]
  8. ASPIRIN [Concomitant]

REACTIONS (1)
  - HIGH DENSITY LIPOPROTEIN DECREASED [None]
